FAERS Safety Report 25461795 (Version 1)
Quarter: 2025Q2

REPORT INFORMATION
  Report Type: Spontaneous
  Country: US (occurrence: US)
  Receive Date: 20250620
  Receipt Date: 20250620
  Transmission Date: 20250716
  Serious: No
  Sender: INNOGENIX, LLC
  Company Number: US-Innogenix, LLC-2179072

PATIENT

DRUGS (4)
  1. METRONIDAZOLE [Suspect]
     Active Substance: METRONIDAZOLE
     Indication: Helicobacter infection
  2. METRONIDAZOLE [Suspect]
     Active Substance: METRONIDAZOLE
     Indication: Peptic ulcer
  3. AMOXICILLIN [Suspect]
     Active Substance: AMOXICILLIN
  4. CLARITHROMYCIN [Suspect]
     Active Substance: CLARITHROMYCIN

REACTIONS (1)
  - Dyspepsia [Unknown]
